FAERS Safety Report 7627113-5 (Version None)
Quarter: 2011Q3

REPORT INFORMATION
  Report Type: 
  Country: None (occurrence: None)
  Receive Date: 20110721
  Receipt Date: 20110715
  Transmission Date: 20111222
  Serious: Yes (Other)
  Sender: FDA-Public Use
  Company Number: JP-PFIZER INC-2011151758

PATIENT
  Age: 45 Year
  Sex: Female

DRUGS (8)
  1. MEILAX [Concomitant]
     Indication: DEPRESSION
     Dosage: 1 MG, 1X/DAY
     Dates: start: 20090407
  2. CLONAZEPAM [Concomitant]
     Dosage: 1 MG, DAILY
     Route: 048
     Dates: start: 20110601, end: 20110710
  3. ZOLOFT [Suspect]
     Indication: DEPRESSION
     Dosage: 25 MG, DAILY
     Route: 048
     Dates: start: 20110601, end: 20110619
  4. MAXALT-MLT [Concomitant]
     Dosage: 10 MG, DAILY
     Route: 048
  5. SUMATRIPTAN SUCCINATE [Concomitant]
     Dosage: 3 MG, DAILY
     Route: 042
  6. ZOLOFT [Suspect]
     Indication: MIGRAINE
     Dosage: 12.5 MG DAILY
     Route: 048
     Dates: start: 20110620, end: 20110628
  7. TRAZODONE HYDROCHLORIDE [Concomitant]
     Indication: DEPRESSION
     Dosage: 25 MG, 1X/DAY
     Dates: start: 20100114
  8. ZOLPIDEM [Concomitant]
     Indication: INSOMNIA
     Dosage: 5 MG, 1X/DAY
     Dates: start: 20100430

REACTIONS (8)
  - EUPHORIC MOOD [None]
  - MALAISE [None]
  - FATIGUE [None]
  - EMOTIONAL DISORDER [None]
  - FEAR [None]
  - DRUG INEFFECTIVE [None]
  - DISINHIBITION [None]
  - AGITATION [None]
